FAERS Safety Report 9099148 (Version 2)
Quarter: 2013Q2

REPORT INFORMATION
  Report Type: Spontaneous
  Country: PT (occurrence: PT)
  Receive Date: 20130214
  Receipt Date: 20130620
  Transmission Date: 20140414
  Serious: Yes (Life-Threatening, Hospitalization)
  Sender: FDA-Public Use
  Company Number: PT-BAXTER-2013BAX005254

PATIENT
  Age: 43 Year
  Sex: Female
  Weight: 73 kg

DRUGS (19)
  1. NACL 0.9 % [Concomitant]
     Indication: BREAST CANCER
     Route: 042
  2. ENDOXAN [Suspect]
     Indication: BREAST CANCER
     Route: 042
     Dates: start: 20121129
  3. ENDOXAN [Suspect]
     Route: 042
     Dates: start: 20130207
  4. DOCETAXEL HOSPIRA [Suspect]
     Indication: BREAST CANCER
     Route: 042
     Dates: start: 20121129
  5. DOCETAXEL HOSPIRA [Suspect]
     Route: 065
     Dates: start: 20121227
  6. RANITIDINA [Concomitant]
     Indication: PRODUCT USED FOR UNKNOWN INDICATION
     Route: 048
     Dates: start: 20121128, end: 20121204
  7. RANITIDINA [Concomitant]
     Indication: BREAST CANCER
     Route: 048
     Dates: start: 20130206
  8. RANITIDINA [Concomitant]
     Route: 048
     Dates: start: 20130210
  9. PREDNISOLONA [Concomitant]
     Indication: PRODUCT USED FOR UNKNOWN INDICATION
     Route: 048
     Dates: start: 20121128
  10. PREDNISOLONA [Concomitant]
     Route: 048
     Dates: start: 20130206
  11. PREDNISOLONA [Concomitant]
     Route: 048
     Dates: start: 20130207
  12. ONDANSETROM [Concomitant]
     Indication: PRODUCT USED FOR UNKNOWN INDICATION
     Dosage: 2 DOSAGES
     Route: 048
     Dates: start: 20121129, end: 20121202
  13. ONDANSETROM [Concomitant]
     Indication: BREAST CANCER
     Dosage: EM 100ML DE NACL 0,9%.
     Route: 042
     Dates: start: 20121129, end: 20121129
  14. ONDANSETROM [Concomitant]
     Route: 042
     Dates: start: 20130207
  15. MIGRALEVE [Concomitant]
     Indication: PRODUCT USED FOR UNKNOWN INDICATION
     Route: 048
  16. TAMOXIFENO [Concomitant]
     Indication: PRODUCT USED FOR UNKNOWN INDICATION
     Route: 048
  17. CLEMASTINE [Concomitant]
     Indication: BREAST CANCER
     Route: 042
     Dates: start: 20130207
  18. PEGFILGRASTIM [Concomitant]
     Indication: BREAST CANCER
     Route: 058
     Dates: start: 20130207
  19. HYDROCORTISONE [Concomitant]
     Indication: BREAST CANCER
     Route: 040
     Dates: start: 20130207

REACTIONS (8)
  - Lacrimation increased [Recovered/Resolved]
  - Cough [Recovered/Resolved]
  - Throat irritation [Recovered/Resolved]
  - Dyspnoea [Recovered/Resolved]
  - Lacrimation increased [Recovered/Resolved]
  - Feeling hot [Recovered/Resolved]
  - Pruritus [Recovered/Resolved]
  - Nasal obstruction [Recovered/Resolved]
